FAERS Safety Report 12248590 (Version 3)
Quarter: 2016Q2

REPORT INFORMATION
  Report Type: Spontaneous
  Country: US (occurrence: US)
  Receive Date: 20160408
  Receipt Date: 20160524
  Transmission Date: 20160815
  Serious: No
  Sender: FDA-Public Use
  Company Number: US-PFIZER INC-2016095386

PATIENT
  Age: 84 Year
  Sex: Female

DRUGS (2)
  1. QUINAPRIL. [Suspect]
     Active Substance: QUINAPRIL
     Dosage: 20 MG, 1X/DAY
     Dates: start: 201512
  2. QUINAPRIL. [Suspect]
     Active Substance: QUINAPRIL
     Dosage: 20 MG, 1X/DAY
     Dates: start: 201510

REACTIONS (3)
  - Drug ineffective [Unknown]
  - Peripheral swelling [Unknown]
  - Productive cough [Unknown]
